FAERS Safety Report 16846525 (Version 1)
Quarter: 2019Q3

REPORT INFORMATION
  Report Type: Spontaneous
  Country: FR (occurrence: FR)
  Receive Date: 20190924
  Receipt Date: 20190924
  Transmission Date: 20191005
  Serious: Yes (Hospitalization)
  Sender: FDA-Public Use
  Company Number: FR-MYLANLABS-2019M1088774

PATIENT
  Age: 64 Year
  Sex: Male

DRUGS (11)
  1. MYLAN-LANSOPRAZOLE [Suspect]
     Active Substance: LANSOPRAZOLE
     Indication: PROPHYLAXIS AGAINST GASTROINTESTINAL ULCER
     Dosage: 30 MILLIGRAM, QD
     Route: 048
     Dates: start: 20190325, end: 20190425
  2. TERBUTALINE ARROW [Suspect]
     Active Substance: TERBUTALINE
     Indication: CHRONIC OBSTRUCTIVE PULMONARY DISEASE
     Dosage: 3 DOSAGE FORM, QD
     Route: 055
     Dates: start: 20190318, end: 20190425
  3. NORADRENALINE MYLAN [Suspect]
     Active Substance: NOREPINEPHRINE\NOREPINEPHRINE BITARTRATE
     Indication: RESUSCITATION
     Dosage: 0.1 G/KG/MIN EN CONTINU
     Route: 042
     Dates: start: 20190318, end: 20190424
  4. BACTRIM [Suspect]
     Active Substance: SULFAMETHOXAZOLE\TRIMETHOPRIM
     Indication: NOCARDIOSIS
     Route: 042
     Dates: start: 20190325, end: 20190425
  5. MIDAZOLAM [Suspect]
     Active Substance: MIDAZOLAM HYDROCHLORIDE
     Indication: RESUSCITATION
     Dosage: 8 MG/HEURE EN CONTINU
     Route: 042
     Dates: start: 20190325, end: 20190425
  6. KETAMINE RENAUDIN [Suspect]
     Active Substance: KETAMINE
     Indication: RESUSCITATION
     Dosage: 300 MG/HEURE EN CONTINU
     Route: 042
     Dates: start: 20190325, end: 20190425
  7. SUFENTANIL MYLAN 50 MICROGRAMMES/ML SOLUTION INJECTABLE [Suspect]
     Active Substance: SUFENTANIL
     Indication: RESUSCITATION
     Dosage: 30 MICROGRAMMES/H EN CONTINU
     Route: 042
     Dates: start: 20190317, end: 20190424
  8. NOVORAPID [Suspect]
     Active Substance: INSULIN ASPART
     Indication: DIABETES MELLITUS
     Dosage: SELON LE PROTOCOLE
     Route: 042
     Dates: start: 20190319, end: 20190425
  9. VITAMIN K [Suspect]
     Active Substance: PHYTONADIONE
     Indication: ACQUIRED VON WILLEBRAND^S DISEASE
     Dosage: 10 MILLIGRAM, QD
     Route: 042
     Dates: start: 20190403, end: 20190425
  10. ACETYLCYSTEINE SANDOZ [Suspect]
     Active Substance: ACETYLCYSTEINE
     Indication: CHRONIC OBSTRUCTIVE PULMONARY DISEASE
     Dosage: 1200 MILLIGRAM, QD
     Route: 048
     Dates: start: 20190318, end: 20190425
  11. FOLINATE DE CALCIUM SANDOZ [Suspect]
     Active Substance: LEUCOVORIN CALCIUM
     Indication: RESUSCITATION
     Dosage: 100 MILLIGRAM, QD
     Route: 042
     Dates: start: 20190325, end: 20190425

REACTIONS (1)
  - Rash maculo-papular [Not Recovered/Not Resolved]

NARRATIVE: CASE EVENT DATE: 20190410
